FAERS Safety Report 7942836-6 (Version None)
Quarter: 2011Q4

REPORT INFORMATION
  Report Type: 
  Country: None (occurrence: None)
  Receive Date: 20111128
  Receipt Date: 20111103
  Transmission Date: 20120403
  Serious: No
  Sender: FDA-Public Use
  Company Number: US-ROXANE LABORATORIES, INC.-2011-RO-01596RO

PATIENT
  Sex: Female

DRUGS (1)
  1. CALCITRIOL [Suspect]
     Indication: HYPERPARATHYROIDISM SECONDARY
     Route: 048
     Dates: start: 20111026

REACTIONS (3)
  - AFFECT LABILITY [None]
  - HEADACHE [None]
  - ABDOMINAL MASS [None]
